FAERS Safety Report 8157482-1 (Version None)
Quarter: 2012Q1

REPORT INFORMATION
  Report Type: 
  Country: None (occurrence: None)
  Receive Date: 20120222
  Receipt Date: 20120214
  Transmission Date: 20120608
  Serious: Yes (Hospitalization)
  Sender: FDA-Public Use
  Company Number: DE-BRISTOL-MYERS SQUIBB COMPANY-16370926

PATIENT
  Age: 48 Year
  Sex: Male
  Weight: 58 kg

DRUGS (3)
  1. NORVIR [Suspect]
     Indication: HIV INFECTION
     Dates: start: 20111001
  2. TRUVADA [Suspect]
     Indication: HIV INFECTION
     Dates: start: 20111001
  3. REYATAZ [Suspect]
     Indication: HIV INFECTION
     Dates: start: 20111001

REACTIONS (2)
  - AIDS ENCEPHALOPATHY [None]
  - DEPRESSION [None]
